FAERS Safety Report 8507757-9 (Version None)
Quarter: 2012Q3

REPORT INFORMATION
  Report Type: 
  Country: None (occurrence: None)
  Receive Date: 20120709
  Receipt Date: 20120709
  Transmission Date: 20120928
  Serious: Yes (Life-Threatening, Hospitalization, Disabling)
  Sender: FDA-Public Use
  Company Number: None

PATIENT
  Age: 60 Year
  Sex: Female
  Weight: 102.0593 kg

DRUGS (1)
  1. PIROXICAM [Suspect]
     Indication: ARTHRALGIA
     Dosage: 20 MG ONCE A DAY 047
     Route: 048

REACTIONS (1)
  - CARDIAC FAILURE CONGESTIVE [None]
